FAERS Safety Report 8815960 (Version 1)
Quarter: 2012Q4

REPORT INFORMATION
  Report Type: Report from Study
  Country: MX (occurrence: MX)
  Receive Date: 20120928
  Receipt Date: 20120928
  Transmission Date: 20130627
  Serious: Yes (Hospitalization)
  Sender: FDA-Public Use
  Company Number: MX-ROCHE-1136450

PATIENT
  Sex: Female
  Weight: 54 kg

DRUGS (2)
  1. HERCEPTIN [Suspect]
     Indication: BREAST CANCER
     Dosage: RESTARTED
     Route: 042
     Dates: end: 20120330
  2. HERCEPTIN [Suspect]
     Route: 065
     Dates: start: 201207

REACTIONS (4)
  - Oedema peripheral [Not Recovered/Not Resolved]
  - Skin exfoliation [Not Recovered/Not Resolved]
  - Toothache [Not Recovered/Not Resolved]
  - Radical mastectomy [Recovering/Resolving]
